FAERS Safety Report 8826040 (Version 2)
Quarter: 2016Q4

REPORT INFORMATION
  Report Type: Report from Study
  Country: FR (occurrence: FR)
  Receive Date: 20121005
  Receipt Date: 20161202
  Transmission Date: 20170207
  Serious: Yes (Hospitalization)
  Sender: FDA-Public Use
  Company Number: FR-ROCHE-1134489

PATIENT
  Age: 38 Year
  Sex: Male
  Weight: 42.1 kg

DRUGS (51)
  1. TOCILIZUMAB [Suspect]
     Active Substance: TOCILIZUMAB
     Indication: RHEUMATOID ARTHRITIS
     Route: 042
     Dates: start: 20111103
  2. CORTANCYL [Concomitant]
     Active Substance: PREDNISONE
     Route: 065
  3. METOJECT [Concomitant]
     Active Substance: METHOTREXATE SODIUM
     Route: 065
     Dates: start: 20140918
  4. SPECIAFOLDINE [Concomitant]
     Active Substance: FOLIC ACID
     Route: 065
  5. SPECIAFOLDINE [Concomitant]
     Active Substance: FOLIC ACID
     Route: 065
     Dates: start: 20140520
  6. SPECIAFOLDINE [Concomitant]
     Active Substance: FOLIC ACID
     Route: 065
     Dates: start: 20150424
  7. PARACETAMOL [Concomitant]
     Active Substance: ACETAMINOPHEN
  8. LYRICA [Concomitant]
     Active Substance: PREGABALIN
     Route: 065
     Dates: start: 20140520
  9. TOCILIZUMAB [Suspect]
     Active Substance: TOCILIZUMAB
     Route: 042
     Dates: start: 20120308
  10. CORTANCYL [Concomitant]
     Active Substance: PREDNISONE
     Route: 065
     Dates: start: 20020513
  11. CORTANCYL [Concomitant]
     Active Substance: PREDNISONE
     Route: 065
  12. CORTANCYL [Concomitant]
     Active Substance: PREDNISONE
     Route: 065
     Dates: start: 20120723
  13. CORTANCYL [Concomitant]
     Active Substance: PREDNISONE
     Route: 065
     Dates: start: 20131025
  14. METOJECT [Concomitant]
     Active Substance: METHOTREXATE SODIUM
     Route: 065
     Dates: start: 20130530
  15. SPECIAFOLDINE [Concomitant]
     Active Substance: FOLIC ACID
     Route: 065
     Dates: start: 20130530
  16. SPECIAFOLDINE [Concomitant]
     Active Substance: FOLIC ACID
     Route: 065
     Dates: start: 20140918
  17. NOVATREX NOS [Concomitant]
     Active Substance: AZITHROMYCIN OR METHOTREXATE SODIUM
     Route: 065
     Dates: start: 20130530
  18. LYRICA [Concomitant]
     Active Substance: PREGABALIN
     Route: 065
     Dates: start: 20150424
  19. CORTANCYL [Concomitant]
     Active Substance: PREDNISONE
     Route: 065
     Dates: start: 20140918
  20. CORTANCYL [Concomitant]
     Active Substance: PREDNISONE
     Route: 065
     Dates: start: 20150424
  21. CORTANCYL [Concomitant]
     Active Substance: PREDNISONE
     Route: 065
  22. SPECIAFOLDINE [Concomitant]
     Active Substance: FOLIC ACID
     Route: 065
     Dates: start: 20150424
  23. TARDYFERON (FRANCE) [Concomitant]
     Dosage: 2 DOSES PER DAY
     Route: 065
     Dates: start: 20120723
  24. TARDYFERON (FRANCE) [Concomitant]
     Dosage: 2 DOSES PER DAY
     Route: 065
     Dates: start: 20150424
  25. NOVATREX NOS [Concomitant]
     Active Substance: AZITHROMYCIN OR METHOTREXATE SODIUM
     Route: 065
     Dates: start: 20131025
  26. CORTANCYL [Concomitant]
     Active Substance: PREDNISONE
     Route: 065
  27. TARDYFERON (FRANCE) [Concomitant]
     Dosage: 2 DOSES PER DAY
     Route: 065
     Dates: start: 20140520
  28. NOVATREX NOS [Concomitant]
     Active Substance: AZITHROMYCIN OR METHOTREXATE SODIUM
     Route: 065
     Dates: start: 20140520
  29. NOVATREX NOS [Concomitant]
     Active Substance: AZITHROMYCIN OR METHOTREXATE SODIUM
     Route: 065
     Dates: start: 20140918
  30. TOCILIZUMAB [Suspect]
     Active Substance: TOCILIZUMAB
     Route: 042
     Dates: start: 20111215
  31. SPECIAFOLDINE [Concomitant]
     Active Substance: FOLIC ACID
     Route: 065
     Dates: start: 20150930
  32. TARDYFERON (FRANCE) [Concomitant]
     Route: 065
  33. TARDYFERON (FRANCE) [Concomitant]
     Dosage: 2 DOSES PER DAY
     Route: 065
     Dates: start: 20140918
  34. LYRICA [Concomitant]
     Active Substance: PREGABALIN
     Route: 065
     Dates: start: 20140918
  35. TOCILIZUMAB [Suspect]
     Active Substance: TOCILIZUMAB
     Route: 042
     Dates: start: 20120112
  36. CORTANCYL [Concomitant]
     Active Substance: PREDNISONE
     Route: 065
  37. CORTANCYL [Concomitant]
     Active Substance: PREDNISONE
     Route: 065
     Dates: start: 20130530
  38. METOJECT [Concomitant]
     Active Substance: METHOTREXATE SODIUM
     Route: 065
     Dates: start: 20140520
  39. ARAVA [Concomitant]
     Active Substance: LEFLUNOMIDE
  40. SPECIAFOLDINE [Concomitant]
     Active Substance: FOLIC ACID
     Route: 065
     Dates: start: 20131025
  41. TARDYFERON (FRANCE) [Concomitant]
     Dosage: 2 DOSES PER DAY
     Route: 065
     Dates: start: 20130530
  42. NOVATREX NOS [Concomitant]
     Active Substance: AZITHROMYCIN OR METHOTREXATE SODIUM
     Route: 065
  43. METOJECT [Concomitant]
     Active Substance: METHOTREXATE SODIUM
     Route: 065
  44. METOJECT [Concomitant]
     Active Substance: METHOTREXATE SODIUM
     Route: 065
     Dates: start: 20131025
  45. SPECIAFOLDINE [Concomitant]
     Active Substance: FOLIC ACID
     Route: 065
     Dates: start: 20120723
  46. TARDYFERON (FRANCE) [Concomitant]
     Dosage: 2 DOSES PER DAY
     Route: 065
     Dates: start: 20131025
  47. TARDYFERON (FRANCE) [Concomitant]
     Dosage: 2 DOSES PER DAY
     Route: 065
     Dates: start: 20150930
  48. LYRICA [Concomitant]
     Active Substance: PREGABALIN
     Route: 065
     Dates: start: 20120723
  49. LYRICA [Concomitant]
     Active Substance: PREGABALIN
     Route: 065
     Dates: start: 20130530
  50. LYRICA [Concomitant]
     Active Substance: PREGABALIN
     Route: 065
     Dates: start: 20131025
  51. LYRICA [Concomitant]
     Active Substance: PREGABALIN
     Route: 065
     Dates: start: 20150930

REACTIONS (15)
  - Pyrexia [Recovered/Resolved]
  - Lung disorder [Recovered/Resolved]
  - Pain in extremity [Recovered/Resolved]
  - Bronchitis [Recovered/Resolved]
  - Skin ulcer [Recovered/Resolved]
  - Arthralgia [Recovered/Resolved]
  - Infection [Recovered/Resolved]
  - Bronchitis [Recovered/Resolved]
  - Paraesthesia [Recovered/Resolved]
  - Skin ulcer [Unknown]
  - Tooth infection [Recovered/Resolved]
  - Oedema peripheral [Recovered/Resolved]
  - Gastroenteritis [Recovered/Resolved]
  - Chills [Recovered/Resolved]
  - Erysipelas [Recovered/Resolved]

NARRATIVE: CASE EVENT DATE: 20111105
